FAERS Safety Report 4340796-0 (Version None)
Quarter: 2004Q2

REPORT INFORMATION
  Report Type: 
  Country: None (occurrence: None)
  Receive Date: 20040419
  Receipt Date: 20040112
  Transmission Date: 20050107
  Serious: No
  Sender: FDA-Public Use
  Company Number: US-GLAXOSMITHKLINE-A0492572A

PATIENT
  Sex: Female

DRUGS (4)
  1. ESKALITH [Suspect]
     Indication: DRUG USE FOR UNKNOWN INDICATION
     Dosage: 300MG THREE TIMES PER DAY
     Route: 048
     Dates: start: 19930101
  2. SYNTHROID [Concomitant]
  3. UNKNOWN MEDICATION [Concomitant]
     Dosage: 75MG PER DAY
  4. TOPROL-XL [Concomitant]
     Dosage: 50MG PER DAY

REACTIONS (5)
  - FATIGUE [None]
  - HEADACHE [None]
  - LETHARGY [None]
  - NAUSEA [None]
  - PHARMACEUTICAL PRODUCT COMPLAINT [None]
